FAERS Safety Report 16817489 (Version 1)
Quarter: 2019Q3

REPORT INFORMATION
  Report Type: Spontaneous
  Country: US (occurrence: US)
  Receive Date: 20190917
  Receipt Date: 20190917
  Transmission Date: 20191005
  Serious: No
  Sender: FDA-Public Use
  Company Number: US-PFIZER INC-2019397292

PATIENT
  Age: 37 Year
  Sex: Female
  Weight: 49.9 kg

DRUGS (1)
  1. CALAN SR [Suspect]
     Active Substance: VERAPAMIL HYDROCHLORIDE
     Indication: HYPERTENSION
     Dosage: UNK UNK, 1X/DAY (3 SOMETHING ONCE DAILY)

REACTIONS (1)
  - Weight decreased [Unknown]
